FAERS Safety Report 23162188 (Version 2)
Quarter: 2023Q4

REPORT INFORMATION
  Report Type: Spontaneous
  Country: DE (occurrence: DE)
  Receive Date: 20231109
  Receipt Date: 20231114
  Transmission Date: 20240110
  Serious: Yes (Other)
  Sender: FDA-Public Use
  Company Number: DE-SANOFI-01830545

PATIENT
  Age: 56 Year
  Sex: Male

DRUGS (1)
  1. AUBAGIO [Suspect]
     Active Substance: TERIFLUNOMIDE
     Indication: Relapsing-remitting multiple sclerosis
     Dosage: UNK
     Dates: start: 2020

REACTIONS (4)
  - Dilated cardiomyopathy [Unknown]
  - Cardiac failure [Unknown]
  - Chronic lymphocytic leukaemia [Unknown]
  - Therapeutic response unexpected [Unknown]
